FAERS Safety Report 8445110-7 (Version None)
Quarter: 2012Q2

REPORT INFORMATION
  Report Type: 
  Country: None (occurrence: None)
  Receive Date: 20120612
  Receipt Date: 20120612
  Transmission Date: 20120825
  Serious: Yes (Disabling)
  Sender: FDA-Public Use
  Company Number: None

PATIENT
  Age: 13 Year
  Sex: Male
  Weight: 55.3388 kg

DRUGS (3)
  1. RISPERIDONE [Suspect]
     Indication: MOOD SWINGS
     Dates: start: 20050104, end: 20120524
  2. CONGENTIN 1MG [Concomitant]
  3. CLONAZEPAM [Concomitant]

REACTIONS (1)
  - TARDIVE DYSKINESIA [None]
